FAERS Safety Report 8059457-X (Version None)
Quarter: 2012Q1

REPORT INFORMATION
  Report Type: 
  Country: None (occurrence: None)
  Receive Date: 20120120
  Receipt Date: 20120119
  Transmission Date: 20120608
  Serious: Yes (Other)
  Sender: FDA-Public Use
  Company Number: US-ROCHE-1031956

PATIENT
  Sex: Female

DRUGS (6)
  1. BONIVA [Suspect]
     Indication: OSTEOPENIA
  2. BONIVA [Suspect]
     Indication: OSTEOPOROSIS
     Dates: start: 20060601, end: 20100301
  3. FOSAMAX [Suspect]
     Indication: OSTEOPOROSIS
     Dates: start: 20030101, end: 20050901
  4. BONIVA [Suspect]
     Indication: OSTEITIS DEFORMANS
  5. FOSAMAX [Suspect]
     Indication: OSTEOPENIA
  6. FOSAMAX [Suspect]
     Indication: OSTEITIS DEFORMANS

REACTIONS (3)
  - EMOTIONAL DISTRESS [None]
  - FEMUR FRACTURE [None]
  - LOW TURNOVER OSTEOPATHY [None]
